FAERS Safety Report 15051738 (Version 2)
Quarter: 2018Q3

REPORT INFORMATION
  Report Type: Spontaneous
  Country: US (occurrence: US)
  Receive Date: 20180622
  Receipt Date: 20180803
  Transmission Date: 20181010
  Serious: Yes (Hospitalization, Other)
  Sender: FDA-Public Use
  Company Number: US-ASTRAZENECA-2018SE79529

PATIENT
  Age: 987 Month
  Sex: Female
  Weight: 55.3 kg

DRUGS (4)
  1. SYMBICORT [Suspect]
     Active Substance: BUDESONIDE\FORMOTEROL FUMARATE DIHYDRATE
     Indication: CHRONIC OBSTRUCTIVE PULMONARY DISEASE
     Dosage: 160/4.5 MCG, 2 PUFFS, TWICE A DAY
     Route: 055
     Dates: start: 201704
  2. SYMBICORT [Suspect]
     Active Substance: BUDESONIDE\FORMOTEROL FUMARATE DIHYDRATE
     Indication: CHRONIC OBSTRUCTIVE PULMONARY DISEASE
     Dosage: 160/4.5 MCG, 2 PUFFS, TWICE A DAY
     Route: 055
     Dates: start: 201711
  3. SYMBICORT [Suspect]
     Active Substance: BUDESONIDE\FORMOTEROL FUMARATE DIHYDRATE
     Indication: ASTHMA
     Dosage: 160/4.5 MCG, 2 PUFFS, TWICE A DAY
     Route: 055
     Dates: start: 201711
  4. SYMBICORT [Suspect]
     Active Substance: BUDESONIDE\FORMOTEROL FUMARATE DIHYDRATE
     Indication: ASTHMA
     Dosage: 160/4.5 MCG, 2 PUFFS, TWICE A DAY
     Route: 055
     Dates: start: 201704

REACTIONS (6)
  - Hip fracture [Unknown]
  - Device malfunction [Not Recovered/Not Resolved]
  - Compression fracture [Unknown]
  - Intentional product misuse [Unknown]
  - Fall [Unknown]
  - Drug dose omission [Unknown]

NARRATIVE: CASE EVENT DATE: 201704
